FAERS Safety Report 5264572-X (Version None)
Quarter: 2007Q1

REPORT INFORMATION
  Report Type: 
  Country: None (occurrence: None)
  Receive Date: 20070314
  Receipt Date: 20070312
  Transmission Date: 20070707
  Serious: Yes (Death)
  Sender: FDA-Public Use
  Company Number: FR-BRISTOL-MYERS SQUIBB COMPANY-13710306

PATIENT
  Age: 69 Year
  Sex: Female

DRUGS (3)
  1. TAMOXIFEN CITRATE [Suspect]
     Indication: BREAST CANCER
     Dates: end: 20040101
  2. IFOSFAMIDE [Suspect]
     Indication: MUELLER'S MIXED TUMOUR
  3. ADRIBLASTIN [Suspect]
     Indication: MUELLER'S MIXED TUMOUR

REACTIONS (2)
  - CEREBROVASCULAR ACCIDENT [None]
  - MUELLER'S MIXED TUMOUR [None]
